FAERS Safety Report 5644693-X (Version None)
Quarter: 2008Q1

REPORT INFORMATION
  Report Type: 
  Country: None (occurrence: None)
  Receive Date: 20080229
  Receipt Date: 20070531
  Transmission Date: 20080703
  Serious: No
  Sender: FDA-Public Use
  Company Number: A0653676A

PATIENT
  Age: 56 Year
  Sex: Female

DRUGS (4)
  1. VALTREX [Suspect]
     Route: 048
     Dates: start: 20061101
  2. WELLBUTRIN [Concomitant]
  3. EVISTA [Concomitant]
  4. ARTHRITIS MEDICATION [Concomitant]

REACTIONS (2)
  - MIGRAINE [None]
  - THERAPEUTIC RESPONSE UNEXPECTED [None]
